FAERS Safety Report 6751868-5 (Version None)
Quarter: 2010Q2

REPORT INFORMATION
  Report Type: 
  Country: None (occurrence: None)
  Receive Date: 20100526
  Receipt Date: 20100322
  Transmission Date: 20101027
  Serious: No
  Sender: FDA-Public Use
  Company Number: 306085

PATIENT
  Age: 37 Year
  Sex: Male

DRUGS (3)
  1. VICTOZA [Suspect]
     Indication: BLOOD GLUCOSE INCREASED
     Dosage: 1.2 MG, QD, SUBCUTANEOUS 1.8 MG, QD, SUBCUTANEOUS
     Route: 058
  2. VICTOZA [Suspect]
     Indication: OVERWEIGHT
     Dosage: 1.2 MG, QD, SUBCUTANEOUS 1.8 MG, QD, SUBCUTANEOUS
     Route: 058
  3. VYVANSE (LISDEXAMFETAMINE MESILATE) ONGOING [Concomitant]

REACTIONS (1)
  - NERVOUSNESS [None]
